FAERS Safety Report 20779426 (Version 3)
Quarter: 2022Q3

REPORT INFORMATION
  Report Type: Spontaneous
  Country: US (occurrence: None)
  Receive Date: 20220503
  Receipt Date: 20220725
  Transmission Date: 20221027
  Serious: No
  Sender: FDA-Public Use
  Company Number: 2022A164693

PATIENT
  Age: 28956 Day
  Sex: Male
  Weight: 108.9 kg

DRUGS (6)
  1. BYETTA [Suspect]
     Active Substance: EXENATIDE
     Indication: Type 2 diabetes mellitus
     Route: 058
     Dates: start: 20220330, end: 202204
  2. BYETTA [Concomitant]
     Active Substance: EXENATIDE
     Indication: Type 2 diabetes mellitus
     Route: 058
  3. FIASP FLEX TOUCH PEN [Concomitant]
     Indication: Type 2 diabetes mellitus
     Dosage: 2 TO 22 UNITS AS REQUIRED
     Route: 058
  4. LANTUS [Concomitant]
     Active Substance: INSULIN GLARGINE
     Indication: Type 2 diabetes mellitus
     Dosage: 50 UNITS ONCE A DAY
     Route: 058
  5. TOLAZIMIDE [Concomitant]
     Route: 048
  6. NOVOLOG [Concomitant]
     Active Substance: INSULIN ASPART
     Indication: Type 2 diabetes mellitus
     Route: 065

REACTIONS (7)
  - Illness [Recovered/Resolved]
  - Nasopharyngitis [Recovered/Resolved]
  - Blood glucose increased [Recovered/Resolved]
  - Glycosylated haemoglobin abnormal [Not Recovered/Not Resolved]
  - Incorrect dose administered by device [Unknown]
  - Intentional device misuse [Unknown]
  - Device leakage [Unknown]

NARRATIVE: CASE EVENT DATE: 20220401
